FAERS Safety Report 16968989 (Version 2)
Quarter: 2019Q4

REPORT INFORMATION
  Report Type: Spontaneous
  Country: BE (occurrence: BE)
  Receive Date: 20191029
  Receipt Date: 20191118
  Transmission Date: 20200122
  Serious: Yes (Hospitalization)
  Sender: FDA-Public Use
  Company Number: BE-TEVA-2019-BE-1128703

PATIENT
  Age: 19 Year
  Sex: Female

DRUGS (3)
  1. IBUPROFEN. [Suspect]
     Active Substance: IBUPROFEN
     Dosage: FORMULATION:PILLS
     Route: 065
  2. ACETAMINOPHEN. [Suspect]
     Active Substance: ACETAMINOPHEN
     Dosage: FORMULATION:PILLS
     Route: 065
  3. RISPERIDONE. [Suspect]
     Active Substance: RISPERIDONE
     Dosage: FORMULATION:PILLS
     Route: 065

REACTIONS (4)
  - Toxicity to various agents [Recovering/Resolving]
  - Intentional product misuse [Recovering/Resolving]
  - Prescription drug used without a prescription [Recovering/Resolving]
  - Extrapyramidal disorder [Recovering/Resolving]
